FAERS Safety Report 6540304-X (Version None)
Quarter: 2010Q1

REPORT INFORMATION
  Report Type: 
  Country: None (occurrence: None)
  Receive Date: 20100111
  Receipt Date: 20091231
  Transmission Date: 20100710
  Serious: Yes (Hospitalization)
  Sender: FDA-Public Use
  Company Number: UKP09000207

PATIENT
  Sex: Female

DRUGS (1)
  1. ACTOKIT (RISEDRONATE SODIUM 35 MG, CALCIUM CARBONATE 1250 MG) TABLET, [Suspect]
     Dosage: ORAL
     Route: 048

REACTIONS (1)
  - PANCREATITIS ACUTE [None]
